FAERS Safety Report 5646451-9 (Version None)
Quarter: 2008Q1

REPORT INFORMATION
  Report Type: 
  Country: None (occurrence: None)
  Receive Date: 20080303
  Receipt Date: 20080221
  Transmission Date: 20080703
  Serious: Yes (Hospitalization)
  Sender: FDA-Public Use
  Company Number: JP-BRISTOL-MYERS SQUIBB COMPANY-14093124

PATIENT
  Age: 34 Year
  Sex: Female

DRUGS (4)
  1. GATIFLOXACIN [Suspect]
     Indication: ACUTE SINUSITIS
     Route: 048
     Dates: start: 20080208, end: 20080208
  2. SOLANTAL [Concomitant]
     Route: 048
     Dates: start: 20080208, end: 20080208
  3. MUCODYNE [Concomitant]
     Route: 048
     Dates: start: 20080208, end: 20080208
  4. DASEN [Concomitant]
     Route: 048
     Dates: start: 20080208, end: 20080208

REACTIONS (1)
  - ANAPHYLACTIC SHOCK [None]
